FAERS Safety Report 6614125-3 (Version None)
Quarter: 2010Q1

REPORT INFORMATION
  Report Type: 
  Country: None (occurrence: None)
  Receive Date: 20100304
  Receipt Date: 20100224
  Transmission Date: 20100710
  Serious: Yes (Hospitalization)
  Sender: FDA-Public Use
  Company Number: ZA-JNJFOC-20100211139

PATIENT
  Sex: Female

DRUGS (4)
  1. VERMOX [Suspect]
     Indication: HELMINTHIC INFECTION
     Route: 065
  2. WARFARIN SODIUM [Suspect]
     Indication: DRUG USE FOR UNKNOWN INDICATION
     Route: 065
  3. ANTI DEPRESSANTS [Concomitant]
     Route: 065
  4. ASTHMA MEDICATION [Concomitant]
     Route: 065

REACTIONS (2)
  - NAUSEA [None]
  - OVERDOSE [None]
